FAERS Safety Report 8306833 (Version 2)
Quarter: 2012Q4

REPORT INFORMATION
  Report Type: 
  Country: NL (occurrence: NL)
  Receive Date: 20111222
  Receipt Date: 20121019
  Transmission Date: 20130627
  Serious: Yes (Other)
  Sender: FDA-Public Use
  Company Number: NL-US-EMD SERONO, INC.-7029455

PATIENT
  Age: 43 None
  Sex: Female
  Weight: 75 kg

DRUGS (14)
  1. REBIF [Suspect]
     Indication: MULTIPLE SCLEROSIS
     Route: 058
     Dates: start: 20091215, end: 20121005
  2. ETHINYLESTRADIOL/LEVONOGESTREL [Concomitant]
     Indication: CONTRACEPTION
     Route: 048
  3. AMITRIPTYLINE [Concomitant]
     Indication: PAIN
     Route: 048
     Dates: start: 2010
  4. AMITRIPTYLINE [Concomitant]
     Indication: PARAESTHESIA
  5. VITAMINE D (VITAMIN D) [Concomitant]
     Indication: PRODUCT USED FOR UNKNOWN INDICATION
     Route: 048
     Dates: start: 2010
  6. PARACETAMOL [Concomitant]
     Indication: HEADACHE
     Dates: start: 200912
  7. ENALAPRIL [Concomitant]
     Indication: HYPERTENSION
     Dates: start: 20111216
  8. ENALAPRIL [Concomitant]
  9. AMLODIPINE MALEATE [Concomitant]
     Indication: PRODUCT USED FOR UNKNOWN INDICATION
  10. CODEINE PHOSPHATE [Concomitant]
     Indication: PRODUCT USED FOR UNKNOWN INDICATION
  11. DICLOFENAC SODIUM MSR [Concomitant]
     Indication: PRODUCT USED FOR UNKNOWN INDICATION
  12. ESOMEPRAZOL MSR [Concomitant]
     Indication: PRODUCT USED FOR UNKNOWN INDICATION
  13. OMEPRAZOL MSR [Concomitant]
     Indication: PRODUCT USED FOR UNKNOWN INDICATION
  14. PERINDOPRIL ERBUMINE [Concomitant]
     Indication: PRODUCT USED FOR UNKNOWN INDICATION

REACTIONS (8)
  - Diabetes mellitus [Not Recovered/Not Resolved]
  - Urinary tract infection bacterial [Not Recovered/Not Resolved]
  - Ovarian cyst [Not Recovered/Not Resolved]
  - Hypertension [Not Recovered/Not Resolved]
  - Paraesthesia [Not Recovered/Not Resolved]
  - Headache [Recovered/Resolved]
  - Fatigue [Unknown]
  - Injection site reaction [Unknown]
